FAERS Safety Report 18339370 (Version 3)
Quarter: 2020Q4

REPORT INFORMATION
  Report Type: Spontaneous
  Country: DE (occurrence: DE)
  Receive Date: 20201002
  Receipt Date: 20201117
  Transmission Date: 20210113
  Serious: Yes (Hospitalization, Other)
  Sender: FDA-Public Use
  Company Number: NVSC2020DE261247

PATIENT
  Age: 79 Year
  Sex: Male
  Weight: 67 kg

DRUGS (12)
  1. SOLARAZE [Suspect]
     Active Substance: DICLOFENAC SODIUM
     Indication: SKIN CANCER
     Dosage: UNK
     Route: 061
     Dates: start: 2019
  2. ATORVASTATIN [Concomitant]
     Active Substance: ATORVASTATIN
     Indication: BLOOD CHOLESTEROL
     Dosage: 40 MG, QD (0-0-1)
     Route: 065
  3. CANDESARTAN. [Concomitant]
     Active Substance: CANDESARTAN
     Indication: BLOOD PRESSURE ABNORMAL
     Dosage: 8 MG, QD (1-0-0)
     Route: 065
  4. ASPIRIN. [Concomitant]
     Active Substance: ASPIRIN
     Indication: ANTICOAGULANT THERAPY
     Dosage: 100 MG, QD (1-0-0)
     Route: 065
  5. SOLARAZE [Suspect]
     Active Substance: DICLOFENAC SODIUM
     Dosage: UNK UNK, QD
     Route: 061
     Dates: start: 201912, end: 202003
  6. IBUPROFEN. [Concomitant]
     Active Substance: IBUPROFEN
     Indication: PAIN
     Dosage: 400 MG, PRN (AS REQUIRED)
     Route: 065
  7. SOLARAZE [Suspect]
     Active Substance: DICLOFENAC SODIUM
     Dosage: UNK
     Route: 061
     Dates: start: 20191206
  8. SOLARAZE [Suspect]
     Active Substance: DICLOFENAC SODIUM
     Dosage: UNK UNK, QD
     Route: 061
     Dates: start: 201902, end: 201905
  9. ASPIRIN. [Concomitant]
     Active Substance: ASPIRIN
     Indication: ISCHAEMIC HEART DISEASE PROPHYLAXIS
  10. PANTOPRAZOLE [Concomitant]
     Active Substance: PANTOPRAZOLE
     Indication: DYSPEPSIA
     Dosage: 40 MG, QD (1-0-0)
     Route: 065
  11. ALLOPURINOL. [Concomitant]
     Active Substance: ALLOPURINOL
     Indication: BLOOD URIC ACID ABNORMAL
     Dosage: 150 MG, QD (0-0-1/2)
     Route: 065
  12. AMLODIPINE [Concomitant]
     Active Substance: AMLODIPINE BESYLATE
     Indication: BLOOD PRESSURE ABNORMAL
     Dosage: 2.5 MG, QD (ONLY IN THE CASE OF POOR BLOOD PRESSURE VALUES, IT HAS NOT BEEN TAKEN FOR A LONG TIME AL
     Route: 065

REACTIONS (2)
  - Cerebrovascular accident [Recovered/Resolved]
  - Cerebrovascular accident [Recovered/Resolved]

NARRATIVE: CASE EVENT DATE: 20200608
